FAERS Safety Report 11393991 (Version 1)
Quarter: 2015Q3

REPORT INFORMATION
  Report Type: Spontaneous
  Country: US (occurrence: None)
  Receive Date: 20150817
  Receipt Date: 20150817
  Transmission Date: 20151125
  Serious: Yes (Hospitalization, Other)
  Sender: FDA-Public Use
  Company Number: None

PATIENT
  Age: 36 Year
  Sex: Female
  Weight: 86.18 kg

DRUGS (16)
  1. CHANTIX [Suspect]
     Active Substance: VARENICLINE TARTRATE
     Indication: SMOKING CESSATION THERAPY
     Route: 048
     Dates: start: 20150708, end: 20150804
  2. BUPROPRION [Concomitant]
     Active Substance: BUPROPION
  3. METRONIDAZOLE. [Concomitant]
     Active Substance: METRONIDAZOLE
  4. DOXYCYCLINE. [Concomitant]
     Active Substance: DOXYCYCLINE
  5. HYDROXYZINE [Concomitant]
     Active Substance: HYDROXYZINE\HYDROXYZINE HYDROCHLORIDE
  6. TOPAMAX [Concomitant]
     Active Substance: TOPIRAMATE
  7. VALIUM [Concomitant]
     Active Substance: DIAZEPAM
  8. RANITIDINE [Concomitant]
     Active Substance: RANITIDINE\RANITIDINE HYDROCHLORIDE
  9. QUETIAPINE [Concomitant]
     Active Substance: QUETIAPINE
  10. VITAMIN/MINERAL SUPPLEMENT WITH MAGNESIUM CARBONATE, CALCIUM CARBONATE AND FOLIC ACID [Concomitant]
     Active Substance: CALCIUM CARBONATE\FOLIC ACID\MAGNESIUM CARBONATE
  11. MONONESSA [Concomitant]
     Active Substance: ETHINYL ESTRADIOL\NORGESTIMATE
  12. IBUPROFEN. [Concomitant]
     Active Substance: IBUPROFEN
  13. TYLENOL [Concomitant]
     Active Substance: ACETAMINOPHEN
  14. VIIBRYD [Concomitant]
     Active Substance: VILAZODONE HYDROCHLORIDE
  15. ZOLPIDEM [Concomitant]
     Active Substance: ZOLPIDEM\ZOLPIDEM TARTRATE
  16. ALPRAZOLAM. [Concomitant]
     Active Substance: ALPRAZOLAM

REACTIONS (13)
  - Refusal of treatment by patient [None]
  - Pain [None]
  - Paraesthesia [None]
  - Musculoskeletal stiffness [None]
  - Pain in jaw [None]
  - Pain in extremity [None]
  - Hypoaesthesia [None]
  - Blood pressure increased [None]
  - Neck pain [None]
  - Discomfort [None]
  - Tension headache [None]
  - Headache [None]
  - Back pain [None]

NARRATIVE: CASE EVENT DATE: 20150731
